FAERS Safety Report 6283775-9 (Version None)
Quarter: 2009Q3

REPORT INFORMATION
  Report Type: 
  Country: None (occurrence: None)
  Receive Date: 20090724
  Receipt Date: 20070706
  Transmission Date: 20100115
  Serious: Yes (Other)
  Sender: FDA-Public Use
  Company Number: US-ASTRAZENECA-2007UW02081

PATIENT
  Age: 538 Month
  Sex: Male
  Weight: 140.6 kg

DRUGS (11)
  1. SEROQUEL [Suspect]
     Indication: MAJOR DEPRESSION
     Route: 048
     Dates: start: 20030501
  2. SEROQUEL [Suspect]
     Dates: start: 20030901
  3. SEROQUEL [Suspect]
     Dosage: 25 MG-100 MG
     Route: 048
     Dates: start: 20030921
  4. WELLBUTRIN SR [Concomitant]
     Route: 048
  5. WELLBUTRIN SR [Concomitant]
     Route: 048
  6. FLONASE [Concomitant]
  7. GLUCOPHAGE [Concomitant]
     Route: 048
  8. SIMVASTATIN [Concomitant]
     Route: 048
  9. ROSIGLITAZONE MALEATE [Concomitant]
  10. PEPCID [Concomitant]
  11. LISINOPRIL [Concomitant]

REACTIONS (10)
  - BLOOD CHOLESTEROL INCREASED [None]
  - DIABETES MELLITUS [None]
  - NASAL CONGESTION [None]
  - NASAL POLYPS [None]
  - NASAL SEPTUM DEVIATION [None]
  - SINUS OPERATION [None]
  - SUICIDAL IDEATION [None]
  - SUICIDE ATTEMPT [None]
  - TYPE 2 DIABETES MELLITUS [None]
  - WEIGHT INCREASED [None]
